FAERS Safety Report 10103555 (Version 2)
Quarter: 2014Q2

REPORT INFORMATION
  Report Type: Report from Study
  Country: ID (occurrence: ID)
  Receive Date: 20140424
  Receipt Date: 20140424
  Transmission Date: 20141212
  Serious: Yes (Death, Hospitalization, Other)
  Sender: FDA-Public Use
  Company Number: ID-BAYER-2014-019365

PATIENT
  Age: 44 Year
  Sex: Male

DRUGS (1)
  1. NEXAVAR [Suspect]
     Indication: HEPATOCELLULAR CARCINOMA
     Dosage: 400 MG, QD
     Route: 048
     Dates: start: 20131101, end: 20140205

REACTIONS (5)
  - Vomiting [None]
  - Vomiting [Fatal]
  - Diarrhoea [None]
  - Decreased appetite [None]
  - Hepatocellular carcinoma [Fatal]
